FAERS Safety Report 9369815 (Version 1)
Quarter: 2013Q2

REPORT INFORMATION
  Report Type: Spontaneous
  Country: FR (occurrence: FR)
  Receive Date: 20130626
  Receipt Date: 20130626
  Transmission Date: 20140414
  Serious: Yes (Other)
  Sender: FDA-Public Use
  Company Number: FR-ASTRAZENECA-2013SE47376

PATIENT
  Sex: Female

DRUGS (1)
  1. XEROQUEL [Suspect]
     Route: 048

REACTIONS (1)
  - Kaolin cephalin clotting time prolonged [Not Recovered/Not Resolved]
